FAERS Safety Report 18578336 (Version 1)
Quarter: 2020Q4

REPORT INFORMATION
  Report Type: Spontaneous
  Country: US (occurrence: US)
  Receive Date: 20201204
  Receipt Date: 20201204
  Transmission Date: 20210114
  Serious: No
  Sender: FDA-Public Use
  Company Number: US-SA-2020SA348391

PATIENT

DRUGS (1)
  1. DUPIXENT [Suspect]
     Active Substance: DUPILUMAB
     Indication: PSORIASIS
     Dosage: 300 MG, QOW
     Route: 058
     Dates: start: 201911

REACTIONS (9)
  - Nausea [Unknown]
  - Diarrhoea [Unknown]
  - Cough [Unknown]
  - COVID-19 [Unknown]
  - Product use in unapproved indication [Unknown]
  - SARS-CoV-2 test positive [Unknown]
  - Ageusia [Unknown]
  - Fatigue [Unknown]
  - Anosmia [Unknown]

NARRATIVE: CASE EVENT DATE: 201911
